FAERS Safety Report 4567987-8 (Version None)
Quarter: 2005Q1

REPORT INFORMATION
  Report Type: 
  Country: None (occurrence: None)
  Receive Date: 20050131
  Receipt Date: 20050118
  Transmission Date: 20050727
  Serious: Yes (Other)
  Sender: FDA-Public Use
  Company Number: 2005-BP-00783AU

PATIENT
  Age: 83 Year
  Sex: Female

DRUGS (16)
  1. ATROVENT [Suspect]
     Indication: PNEUMONIA
     Dosage: 500 MCG IH
     Route: 055
     Dates: start: 20040417, end: 20040421
  2. CEFTRIAXONE [Suspect]
     Indication: PNEUMONIA
     Dosage: 1G DAILY INTRAVENOUS
     Route: 042
     Dates: start: 20040417, end: 20040423
  3. RULIDE (ROXITHROMYCIN) (TA) [Suspect]
     Indication: PNEUMONIA
     Dosage: 300 MG (300 MG ORALLY DAILY) PO
     Route: 048
     Dates: start: 20040417, end: 20040418
  4. VENTOLIN [Suspect]
     Indication: PNEUMONIA
     Dosage: 5 MG INHALED AS NECESSARY
     Route: 055
     Dates: start: 20040417, end: 20040421
  5. FUROSEMIDE [Suspect]
     Dosage: 240 MG (240 MG DAILY) IV
     Route: 042
     Dates: start: 20040417, end: 20040419
  6. LOSEC [Suspect]
     Dosage: 40 MG (40 MG DAILY) IV
     Route: 042
     Dates: start: 20040417, end: 20040419
  7. CIPROFLOXACIN [Suspect]
     Dosage: 400 MG (400 MG DAILY) IV
     Route: 042
     Dates: start: 20040417, end: 20040423
  8. HYDROCORTISONE [Suspect]
     Indication: PNEUMONIA
     Dosage: 300 MG (300 MG DAILY) IV
     Route: 042
     Dates: start: 20040417, end: 20040421
  9. MAXOLON [Suspect]
     Indication: NAUSEA
     Dosage: 10 MG, 10 MG AS NECESSARY)
     Dates: start: 20040417, end: 20040423
  10. MAXOLON [Suspect]
     Indication: VOMITING
     Dosage: 10 MG, 10 MG AS NECESSARY)
     Dates: start: 20040417, end: 20040423
  11. ENOXAPARIN SODIUM [Suspect]
     Dosage: 100 MG (100 MG DAILY) SC
     Route: 058
     Dates: start: 20040417, end: 20040419
  12. SLOW-K [Suspect]
     Dosage: 4 DOSES DAILY PO
     Route: 048
  13. CALTRATE (CALCIUM CARBONATE) (TA) [Suspect]
     Dosage: 2 DOSES DAILY PO
     Route: 048
  14. FOLIC ACID [Suspect]
     Dosage: 5 MG WEEKLY PO
     Route: 048
  15. PREDNISOLONE [Suspect]
     Dosage: 30 MG (30 MG DAILY )
  16. ZANTAC [Suspect]
     Dosage: 5 MG, 300 MG DAILY PO
     Route: 048

REACTIONS (4)
  - BLOOD CREATININE INCREASED [None]
  - BLOOD UREA INCREASED [None]
  - HYPOKALAEMIA [None]
  - RENAL IMPAIRMENT [None]
